FAERS Safety Report 25645939 (Version 1)
Quarter: 2025Q3

REPORT INFORMATION
  Report Type: Spontaneous
  Country: US (occurrence: US)
  Receive Date: 20250805
  Receipt Date: 20250805
  Transmission Date: 20251020
  Serious: No
  Sender: FRESENIUS KABI
  Company Number: US-FreseniusKabi-FK202510390

PATIENT
  Age: 49 Year
  Sex: Female
  Weight: 86.18 kg

DRUGS (1)
  1. ADALIMUMAB-AACF [Suspect]
     Active Substance: ADALIMUMAB-AACF
     Indication: Rheumatoid arthritis
     Dosage: FORM OF ADMINISTRATION: INJECTION; PRE-FILLED SYRINGE?QUANTITY: 2 INJECTIONS?THERAPY START DATE REPO
     Dates: end: 20250612

REACTIONS (1)
  - Drug ineffective [Unknown]
